FAERS Safety Report 13596676 (Version 2)
Quarter: 2019Q3

REPORT INFORMATION
  Report Type: Spontaneous
  Country: US (occurrence: US)
  Receive Date: 20170531
  Receipt Date: 20190826
  Transmission Date: 20191004
  Serious: No
  Sender: FDA-Public Use
  Company Number: US-PFIZER INC-2017232438

PATIENT
  Age: 46 Year
  Sex: Female

DRUGS (3)
  1. BUSPIRONE [Suspect]
     Active Substance: BUSPIRONE HYDROCHLORIDE
     Dosage: UNK
  2. VISTARIL [Suspect]
     Active Substance: HYDROXYZINE PAMOATE
     Dosage: UNK
  3. PIPERAZINE [Suspect]
     Active Substance: PIPERAZINE
     Dosage: UNK

REACTIONS (1)
  - Drug hypersensitivity [Unknown]
